FAERS Safety Report 9015384 (Version 2)
Quarter: 2013Q1

REPORT INFORMATION
  Report Type: Spontaneous
  Country: DK (occurrence: DK)
  Receive Date: 20130116
  Receipt Date: 20130125
  Transmission Date: 20140127
  Serious: Yes (Death, Hospitalization)
  Sender: FDA-Public Use
  Company Number: DK-NAPPMUNDI-GBR-2013-0012729

PATIENT
  Age: 48 Year
  Sex: Male
  Weight: 74 kg

DRUGS (17)
  1. MORPHINE SULFATE [Suspect]
     Indication: PRODUCT USED FOR UNKNOWN INDICATION
     Route: 065
  2. OXYCODONE HYDROCHLORIDE [Suspect]
     Indication: BACK PAIN
     Dosage: 180 MG, DAILY
     Route: 065
     Dates: start: 20100810
  3. OXYCODONE HYDROCHLORIDE [Suspect]
     Dosage: 120 MG, DAILY
     Route: 065
     Dates: start: 20100421
  4. PREGABALIN [Suspect]
     Indication: BACK PAIN
     Dosage: 220 MG, DAILY
     Dates: start: 20100817
  5. PREGABALIN [Suspect]
     Dosage: 100 MG, DAILY
     Dates: start: 20100813
  6. PREGABALIN [Suspect]
     Dosage: 50 MG, DAILY
     Route: 065
     Dates: start: 20100810
  7. BEVACIZUMAB [Suspect]
     Indication: PRODUCT USED FOR UNKNOWN INDICATION
     Dosage: EVERY 3 WEEKS, DOSE BLINDED
     Route: 042
     Dates: start: 20091120, end: 20100825
  8. TEMOZOLOMIDE [Suspect]
     Indication: PRODUCT USED FOR UNKNOWN INDICATION
     Dosage: 380 MG/M2, DAILY
     Route: 048
     Dates: start: 20091120, end: 20100621
  9. LANSOPRAZOLE [Concomitant]
     Dosage: UNK
     Dates: start: 20091230
  10. MEDROL                             /00049601/ [Concomitant]
     Dosage: UNK TABLET, UNK
     Dates: start: 20100224, end: 20100401
  11. FRAGMIN [Concomitant]
     Dosage: UNK
     Dates: start: 20100310
  12. PAMOL [Concomitant]
     Dosage: UNK
     Dates: start: 20090805
  13. MAGNESIA                           /00123201/ [Concomitant]
     Dosage: UNK
     Dates: start: 2009
  14. SODIUM PICOSULFATE [Concomitant]
     Dosage: UNK
     Dates: start: 20100901
  15. DALTEPARIN [Concomitant]
     Dosage: UNK
     Dates: start: 20100916
  16. RISPERIDONE [Concomitant]
     Dosage: UNK
     Dates: start: 20100916
  17. DICLOFENAC [Concomitant]
     Dosage: UNK
     Dates: start: 20100906

REACTIONS (5)
  - Somnolence [Recovered/Resolved]
  - Cyst [Recovered/Resolved]
  - Wound infection [Fatal]
  - Wound secretion [Recovered/Resolved]
  - Back pain [Recovered/Resolved]
